FAERS Safety Report 26012593 (Version 2)
Quarter: 2025Q4

REPORT INFORMATION
  Report Type: Spontaneous
  Country: JM (occurrence: JM)
  Receive Date: 20251107
  Receipt Date: 20251204
  Transmission Date: 20260118
  Serious: Yes (Other)
  Sender: NOVARTIS
  Company Number: JM-002147023-NVSC2025JM168886

PATIENT
  Sex: Female

DRUGS (12)
  1. KISQALI [Suspect]
     Active Substance: RIBOCICLIB SUCCINATE
     Indication: Breast cancer
     Dosage: 600 MG, QD FOR WEEK, WEEKS FOLLOWED BY 1 WEEK BREAK (3 X 200MG TABLETS)
     Route: 048
     Dates: start: 20250213, end: 202507
  2. FEMARA [Suspect]
     Active Substance: LETROZOLE
     Indication: Breast cancer
     Dosage: 2.5 MG, QD
     Route: 048
     Dates: start: 202502, end: 202507
  3. Diamicron [Concomitant]
     Indication: Diabetes mellitus
     Dosage: 60 MG, QD
     Route: 065
  4. Diamicron [Concomitant]
     Indication: Hypertension
  5. INDAPAMIDE [Concomitant]
     Active Substance: INDAPAMIDE
     Indication: Diabetes mellitus
     Dosage: UNK
     Route: 065
  6. INDAPAMIDE [Concomitant]
     Active Substance: INDAPAMIDE
     Indication: Hypertension
  7. CRESTOR [Concomitant]
     Active Substance: ROSUVASTATIN CALCIUM
     Indication: Diabetes mellitus
     Dosage: 10 MG
     Route: 065
  8. CRESTOR [Concomitant]
     Active Substance: ROSUVASTATIN CALCIUM
     Indication: Hypertension
  9. CANDESARTAN [Concomitant]
     Active Substance: CANDESARTAN
     Indication: Diabetes mellitus
     Dosage: 10 MG
     Route: 065
  10. CANDESARTAN [Concomitant]
     Active Substance: CANDESARTAN
     Indication: Hypertension
  11. METFORMIN HYDROCHLORIDE\VILDAGLIPTIN [Concomitant]
     Active Substance: METFORMIN HYDROCHLORIDE\VILDAGLIPTIN
     Indication: Diabetes mellitus
     Dosage: UNK, QD
     Route: 065
  12. METFORMIN HYDROCHLORIDE\VILDAGLIPTIN [Concomitant]
     Active Substance: METFORMIN HYDROCHLORIDE\VILDAGLIPTIN
     Indication: Hypertension

REACTIONS (4)
  - Renal impairment [Unknown]
  - Haemoglobin decreased [Unknown]
  - White blood cell count decreased [Unknown]
  - Vomiting [Unknown]

NARRATIVE: CASE EVENT DATE: 20230101
